FAERS Safety Report 10935817 (Version 1)
Quarter: 2015Q1

REPORT INFORMATION
  Report Type: Spontaneous
  Country: US (occurrence: US)
  Receive Date: 20150320
  Receipt Date: 20150320
  Transmission Date: 20150721
  Serious: Yes (Other)
  Sender: FDA-Public Use
  Company Number: US-ASTRAZENECA-2014SE56439

PATIENT
  Age: 26472 Day
  Sex: Male
  Weight: 111.6 kg

DRUGS (40)
  1. OMEPRAZOLE. [Concomitant]
     Active Substance: OMEPRAZOLE
     Route: 048
     Dates: start: 20100804
  2. INSULIN LISPRO [Concomitant]
     Active Substance: INSULIN LISPRO
     Dosage: 100 UNIT/ML, 1-5 UNITS FOUR TIMES DAILY
     Route: 058
     Dates: start: 20140506
  3. CARDURA [Concomitant]
     Active Substance: DOXAZOSIN MESYLATE
     Dates: start: 20080717
  4. PRAVACHOL [Concomitant]
     Active Substance: PRAVASTATIN SODIUM
     Dates: start: 20030523
  5. MELOXICAM. [Concomitant]
     Active Substance: MELOXICAM
     Dosage: 15 MG
     Dates: start: 20100712
  6. BYETTA [Suspect]
     Active Substance: EXENATIDE
     Indication: TYPE 2 DIABETES MELLITUS
     Route: 058
     Dates: start: 20091221
  7. LISINOPRIL. [Concomitant]
     Active Substance: LISINOPRIL
     Route: 048
     Dates: start: 20070716
  8. TAMSULOSIN HCL [Concomitant]
     Active Substance: TAMSULOSIN
     Route: 048
     Dates: start: 20100712
  9. CARBIDOPA-LEVODOPA [Concomitant]
     Active Substance: CARBIDOPA\LEVODOPA
     Dosage: 25-100 MG EVERY EVENING
     Route: 048
     Dates: start: 20120914
  10. PLAVIX [Concomitant]
     Active Substance: CLOPIDOGREL BISULFATE
     Route: 048
     Dates: start: 20120918
  11. VITAMIN D [Concomitant]
     Active Substance: CHOLECALCIFEROL
     Dosage: 400 UNITS DAILY
     Dates: start: 20091002
  12. BYETTA [Suspect]
     Active Substance: EXENATIDE
     Indication: TYPE 2 DIABETES MELLITUS
     Route: 058
     Dates: start: 20080311
  13. COMBIVENT [Concomitant]
     Active Substance: ALBUTEROL SULFATE\IPRATROPIUM BROMIDE
     Dosage: TAKE 1 PUFF BY INHALATION AS NEEDED
     Dates: start: 20120914
  14. FINASTERIDE. [Concomitant]
     Active Substance: FINASTERIDE
     Route: 048
     Dates: start: 20120330
  15. ACCOLATE [Concomitant]
     Active Substance: ZAFIRLUKAST
     Dates: start: 20120330
  16. BYETTA [Suspect]
     Active Substance: EXENATIDE
     Indication: TYPE 2 DIABETES MELLITUS
     Route: 058
     Dates: start: 20070521
  17. CENTRUM SILVER [Concomitant]
     Active Substance: VITAMINS
     Dosage: 1 CAP BY MOUTH DAILY EVERY MORNING
     Route: 048
     Dates: start: 20030523
  18. GABAPENTIN. [Concomitant]
     Active Substance: GABAPENTIN
     Route: 048
     Dates: start: 20120914
  19. CHOLECALCIFEROL [Concomitant]
     Active Substance: CHOLECALCIFEROL
     Dosage: 1000 UNITS, TWO CAPSULES DAILY
     Route: 048
     Dates: start: 20120914
  20. VITAMIN A [Concomitant]
     Active Substance: VITAMIN A
     Dosage: 10000 UNITS DAILY
     Dates: start: 20080925
  21. PRAVASTATIN [Concomitant]
     Active Substance: PRAVASTATIN\PRAVASTATIN SODIUM
     Route: 048
     Dates: start: 20070507
  22. CARTIA XT [Concomitant]
     Active Substance: DILTIAZEM HYDROCHLORIDE
     Route: 048
     Dates: start: 20070618
  23. NEXIUM [Concomitant]
     Active Substance: ESOMEPRAZOLE MAGNESIUM
     Dates: start: 20030523
  24. SUCRALFATE. [Concomitant]
     Active Substance: SUCRALFATE
     Dosage: 1 GM/10 ML EVERY 6 HOURS
     Route: 048
     Dates: start: 20140605
  25. DOCUSATE [Concomitant]
     Active Substance: DOCUSATE
     Route: 048
     Dates: start: 20140506
  26. FISH OIL [Concomitant]
     Active Substance: FISH OIL
     Dosage: TWO CAPSULES DAILY
     Dates: start: 20120330
  27. NEURONTIN [Concomitant]
     Active Substance: GABAPENTIN
     Dates: start: 20120330
  28. FELODIPINE. [Concomitant]
     Active Substance: FELODIPINE
     Dosage: 5 MG
     Dates: start: 20070813
  29. BYETTA [Suspect]
     Active Substance: EXENATIDE
     Indication: TYPE 2 DIABETES MELLITUS
     Route: 065
     Dates: start: 20100904
  30. FENOFIBRATE. [Concomitant]
     Active Substance: FENOFIBRATE
     Route: 048
     Dates: start: 20110616
  31. METANX [Concomitant]
     Active Substance: LEVOMEFOLATE CALCIUM\METHYLCOBALAMIN\PYRIDOXAL PHOSPHATE ANHYDROUS
     Dosage: 1 TABLET TWO TIMES A DAY
     Route: 048
     Dates: start: 20120330
  32. VITAMIN B12 [Concomitant]
     Active Substance: CYANOCOBALAMIN
     Dates: start: 20080925
  33. DETROL [Concomitant]
     Active Substance: TOLTERODINE TARTRATE
     Dosage: 2 MG
     Dates: start: 20100908
  34. ZAFIRLUKAST. [Concomitant]
     Active Substance: ZAFIRLUKAST
     Dosage: 20 MG
     Dates: start: 20111202
  35. OXYBUTYNIN [Concomitant]
     Active Substance: OXYBUTYNIN
     Dates: start: 20120718
  36. BYETTA [Suspect]
     Active Substance: EXENATIDE
     Indication: TYPE 2 DIABETES MELLITUS
     Dosage: UNK
     Route: 065
     Dates: start: 20070302, end: 20100904
  37. ASPIRIN. [Concomitant]
     Active Substance: ASPIRIN
     Route: 048
     Dates: start: 20120330
  38. AVODART [Concomitant]
     Active Substance: DUTASTERIDE
     Route: 048
     Dates: start: 20070507
  39. CARDIZEM XL [Concomitant]
     Dates: start: 20120330
  40. METHYLPREDNISOLONE. [Concomitant]
     Active Substance: METHYLPREDNISOLONE
     Dosage: 6.25-10/5
     Dates: start: 20101116

REACTIONS (1)
  - Intraductal papillary-mucinous carcinoma of pancreas [Unknown]

NARRATIVE: CASE EVENT DATE: 20120925
